FAERS Safety Report 7298909-7 (Version None)
Quarter: 2011Q1

REPORT INFORMATION
  Report Type: 
  Country: None (occurrence: None)
  Receive Date: 20110209
  Receipt Date: 20110126
  Transmission Date: 20110831
  Serious: Yes (Other)
  Sender: FDA-Public Use
  Company Number: MPS1-1000172

PATIENT
  Age: 45 Year
  Sex: Female
  Weight: 37 kg

DRUGS (11)
  1. DOPAMINE HCL [Concomitant]
  2. TRICHLORMETHIAZIDE [Concomitant]
  3. FUROSEMIDE [Concomitant]
  4. TEMOCAPRIL HYDROCHLORIDE (TEMOCAPRIL HYDROCHLORIDE) [Concomitant]
  5. WARFARIN POTASSIUM (WARFARIN POTASSIUM) [Concomitant]
  6. ALDURAZYME [Suspect]
     Indication: MUCOPOLYSACCHARIDOSIS I
     Dosage: 26.1 MG, 1X/W, INTRAVENOUS
     Route: 042
     Dates: start: 20081003
  7. PREDNISOLONE [Concomitant]
  8. CHLORPHENIRAMINE MALEATE (CHLORPHENRAMINE MALEATE) [Concomitant]
  9. SPIRONOLACTONE [Concomitant]
  10. ALLOPURINOL [Concomitant]
  11. LANSOPRAZOLE [Concomitant]

REACTIONS (1)
  - ERYTHEMA MULTIFORME [None]
